FAERS Safety Report 7781799-3 (Version None)
Quarter: 2011Q3

REPORT INFORMATION
  Report Type: 
  Country: None (occurrence: None)
  Receive Date: 20110927
  Receipt Date: 20110920
  Transmission Date: 20111222
  Serious: Yes (Other)
  Sender: FDA-Public Use
  Company Number: GB-GLAXOSMITHKLINE-B0748571A

PATIENT
  Age: 26 Year
  Sex: Female

DRUGS (1)
  1. PAROXETINE [Suspect]
     Indication: PRODUCT USED FOR UNKNOWN INDICATION
     Route: 065

REACTIONS (10)
  - HEADACHE [None]
  - MUSCLE SPASMS [None]
  - VERTIGO [None]
  - WITHDRAWAL SYNDROME [None]
  - AGITATION [None]
  - SELF-INJURIOUS IDEATION [None]
  - PAIN [None]
  - SUICIDAL IDEATION [None]
  - MALAISE [None]
  - DIZZINESS [None]
